FAERS Safety Report 8961579 (Version 2)
Quarter: 2014Q4

REPORT INFORMATION
  Report Type: Spontaneous
  Country: US (occurrence: US)
  Receive Date: 20121213
  Receipt Date: 20141124
  Transmission Date: 20150529
  Serious: Yes (Hospitalization, Other)
  Sender: FDA-Public Use
  Company Number: US-BAYER-2012-128046

PATIENT
  Age: 21 Year
  Sex: Female

DRUGS (10)
  1. LASIX [Concomitant]
     Active Substance: FUROSEMIDE
  2. PHENYTOIN. [Concomitant]
     Active Substance: PHENYTOIN
  3. FLEXON [Concomitant]
     Active Substance: ACETAMINOPHEN\IBUPROFEN
  4. LIDOCAINE. [Concomitant]
     Active Substance: LIDOCAINE
  5. EPINEPHRINE. [Concomitant]
     Active Substance: EPINEPHRINE
  6. YAZ [Suspect]
     Active Substance: DROSPIRENONE\ETHINYL ESTRADIOL
     Indication: SKIN DISORDER
     Dosage: UNK
     Dates: start: 20080715, end: 20100128
  7. KEPPRA [Concomitant]
     Active Substance: LEVETIRACETAM
  8. MINOCYCLINE [Concomitant]
     Active Substance: MINOCYCLINE\MINOCYCLINE HYDROCHLORIDE
  9. ATROPINE [Concomitant]
     Active Substance: ATROPINE
  10. YASMIN [Suspect]
     Active Substance: DROSPIRENONE\ETHINYL ESTRADIOL
     Dosage: UNK
     Dates: start: 20080715, end: 20100128

REACTIONS (17)
  - Pulmonary embolism [Recovered/Resolved]
  - Respiratory arrest [None]
  - Psychological trauma [None]
  - Product use issue [None]
  - Pain [Recovered/Resolved]
  - Apallic syndrome [None]
  - Cerebral thrombosis [None]
  - Cerebral ischaemia [None]
  - Cognitive disorder [None]
  - Deep vein thrombosis [Recovered/Resolved]
  - Thrombophlebitis superficial [Recovered/Resolved]
  - Emotional distress [None]
  - Jugular vein thrombosis [Recovered/Resolved]
  - Deep vein thrombosis [Recovered/Resolved]
  - Atrial thrombosis [None]
  - Injury [Recovered/Resolved]
  - Anxiety [None]

NARRATIVE: CASE EVENT DATE: 20100128
